FAERS Safety Report 12193649 (Version 2)
Quarter: 2016Q2

REPORT INFORMATION
  Report Type: Report from Study
  Country: US (occurrence: US)
  Receive Date: 20160321
  Receipt Date: 20160410
  Transmission Date: 20160815
  Serious: No
  Sender: FDA-Public Use
  Company Number: US-AMGEN-USASL2016032955

PATIENT
  Age: 53 Year
  Sex: Female

DRUGS (4)
  1. ENBREL [Suspect]
     Active Substance: ETANERCEPT
     Indication: RHEUMATOID ARTHRITIS
     Dosage: 50 MG, QWK
     Route: 065
     Dates: start: 20151228
  2. ALLEGRA [Suspect]
     Active Substance: FEXOFENADINE HYDROCHLORIDE
     Indication: RASH PRURITIC
     Dosage: UNK
     Route: 065
     Dates: start: 2016
  3. ALLEGRA [Suspect]
     Active Substance: FEXOFENADINE HYDROCHLORIDE
     Indication: URTICARIA
  4. ENBREL [Suspect]
     Active Substance: ETANERCEPT
     Dosage: UNK
     Route: 065

REACTIONS (6)
  - Urticaria [Recovered/Resolved]
  - Injection site haemorrhage [Unknown]
  - Rash pruritic [Unknown]
  - Drug ineffective [Unknown]
  - Rash [Unknown]
  - Pruritus [Unknown]

NARRATIVE: CASE EVENT DATE: 2016
